FAERS Safety Report 8072499-3 (Version None)
Quarter: 2012Q1

REPORT INFORMATION
  Report Type: 
  Country: None (occurrence: None)
  Receive Date: 20120126
  Receipt Date: 20120124
  Transmission Date: 20120608
  Serious: Yes (Other)
  Sender: FDA-Public Use
  Company Number: US-PFIZER INC-2012020061

PATIENT
  Sex: Female

DRUGS (6)
  1. DIAZEPAM [Concomitant]
     Indication: ANXIETY
     Dosage: UNK
  2. LUNESTA [Concomitant]
     Indication: INSOMNIA
     Dosage: UNK
  3. OXYCODONE [Concomitant]
     Indication: PAIN
     Dosage: UNK
  4. CHANTIX [Suspect]
     Indication: SMOKING CESSATION THERAPY
     Dosage: 0.5 MG, 1X/DAY
     Route: 048
  5. CHANTIX [Suspect]
     Dosage: UNK
  6. CHANTIX [Suspect]
     Dosage: UNK
     Route: 048
     Dates: start: 20120124

REACTIONS (6)
  - BRONCHITIS [None]
  - ASTHMA [None]
  - NIGHTMARE [None]
  - CHRONIC OBSTRUCTIVE PULMONARY DISEASE [None]
  - EMPHYSEMA [None]
  - STRESS [None]
